FAERS Safety Report 8436534-2 (Version None)
Quarter: 2012Q2

REPORT INFORMATION
  Report Type: 
  Country: None (occurrence: None)
  Receive Date: 20120614
  Receipt Date: 20120606
  Transmission Date: 20120825
  Serious: Yes (Hospitalization)
  Sender: FDA-Public Use
  Company Number: JP-GLAXOSMITHKLINE-B0806836A

PATIENT
  Sex: Female
  Weight: 46 kg

DRUGS (4)
  1. PYDOXAL [Concomitant]
     Indication: SKIN DISORDER
     Route: 048
     Dates: start: 20120403
  2. TAMOXIFEN CITRATE [Concomitant]
     Indication: BREAST CANCER
     Dosage: 20MG PER DAY
     Route: 048
     Dates: end: 20120528
  3. TYKERB [Suspect]
     Indication: BREAST CANCER
     Dosage: 1000MG PER DAY
     Route: 048
     Dates: start: 20120403
  4. HIRUDOID [Concomitant]
     Indication: SKIN DISORDER
     Route: 061
     Dates: start: 20120403

REACTIONS (1)
  - DYSPNOEA [None]
